FAERS Safety Report 21585948 (Version 5)
Quarter: 2023Q1

REPORT INFORMATION
  Report Type: Report from Study
  Country: US (occurrence: US)
  Receive Date: 20221111
  Receipt Date: 20230225
  Transmission Date: 20230418
  Serious: No
  Sender: FDA-Public Use
  Company Number: US-002147023-NVSC2022US255050

PATIENT
  Age: 13 Year
  Sex: Male

DRUGS (2)
  1. OMNITROPE [Suspect]
     Active Substance: SOMATROPIN
     Indication: Short stature
     Dosage: 3 MG, QD
     Route: 058
     Dates: start: 20221102
  2. OMNITROPE [Suspect]
     Active Substance: SOMATROPIN
     Dosage: 3 MG, QD
     Route: 030

REACTIONS (4)
  - Injection site pain [Unknown]
  - Device leakage [Unknown]
  - Device breakage [Unknown]
  - Incorrect dose administered by device [Unknown]

NARRATIVE: CASE EVENT DATE: 20221104
